FAERS Safety Report 5882823-5 (Version None)
Quarter: 2008Q3

REPORT INFORMATION
  Report Type: 
  Country: None (occurrence: None)
  Receive Date: 20080913
  Receipt Date: 20080815
  Transmission Date: 20090109
  Serious: No
  Sender: FDA-Public Use
  Company Number: US-ABBOTT-08P-163-0471166-00

PATIENT
  Sex: Female

DRUGS (3)
  1. HUMIRA [Suspect]
     Indication: PSORIATIC ARTHROPATHY
     Route: 058
     Dates: start: 20080616, end: 20080810
  2. HUMIRA [Suspect]
     Route: 058
     Dates: start: 20080811
  3. UNSPECIFIED MEDICATION [Concomitant]
     Indication: PSORIASIS
     Route: 061

REACTIONS (5)
  - CONTUSION [None]
  - DRUG INEFFECTIVE [None]
  - NASOPHARYNGITIS [None]
  - PSORIASIS [None]
  - RASH [None]
